FAERS Safety Report 9714044 (Version 1)
Quarter: 2013Q4

REPORT INFORMATION
  Report Type: Spontaneous
  Country: US (occurrence: US)
  Receive Date: 20131126
  Receipt Date: 20131126
  Transmission Date: 20140711
  Serious: No
  Sender: FDA-Public Use
  Company Number: US-GILEAD-2008-0018705

PATIENT
  Age: 51 Year
  Sex: Female

DRUGS (14)
  1. LETAIRIS [Suspect]
     Indication: PULMONARY ARTERIAL HYPERTENSION
     Route: 048
     Dates: start: 20080103
  2. SOMA [Suspect]
  3. WOMEN^S ONE DAILY VITAMIN [Concomitant]
  4. POTASSIUM [Concomitant]
  5. LASIX [Concomitant]
  6. TRAZODONE [Concomitant]
  7. KLONOPIN [Concomitant]
  8. DARVON [Concomitant]
  9. SALSALATE [Concomitant]
  10. MECLIZINE [Concomitant]
  11. NEURONTIN [Concomitant]
  12. TOPAMAX [Concomitant]
  13. EFFEXOR [Concomitant]
  14. REVATIO [Concomitant]

REACTIONS (1)
  - Rash [Unknown]
